FAERS Safety Report 23462631 (Version 1)
Quarter: 2024Q1

REPORT INFORMATION
  Report Type: Spontaneous
  Country: US (occurrence: None)
  Receive Date: 20240131
  Receipt Date: 20240131
  Transmission Date: 20240409
  Serious: No
  Sender: FDA-Public Use
  Company Number: None

PATIENT
  Sex: Female

DRUGS (3)
  1. EPOPROSTENOL [Suspect]
     Active Substance: EPOPROSTENOL
     Indication: Pulmonary arterial hypertension
     Dosage: OTHER FREQUENCY : CONTINUOUS;?
     Route: 042
     Dates: start: 202209
  2. PUMP CADD LEGACY [Concomitant]
  3. SODIUM CHLOR INJ )1000ML/BAG) [Concomitant]

REACTIONS (2)
  - Weight decreased [None]
  - Incorrect dose administered [None]
